FAERS Safety Report 18836588 (Version 1)
Quarter: 2021Q1

REPORT INFORMATION
  Report Type: Spontaneous
  Country: US (occurrence: US)
  Receive Date: 20210203
  Receipt Date: 20210203
  Transmission Date: 20210419
  Serious: No
  Sender: FDA-Public Use
  Company Number: US-ALLERGAN-2010079US

PATIENT

DRUGS (2)
  1. BOTOX [Suspect]
     Active Substance: ONABOTULINUMTOXINA
     Indication: SKIN WRINKLING
     Dosage: UNK UNK, SINGLE
     Dates: start: 202001, end: 202001
  2. JUVEDERM [Concomitant]
     Active Substance: HYALURONIC ACID
     Indication: SKIN WRINKLING
     Dosage: UNK, SINGLE
     Dates: start: 202001, end: 202001

REACTIONS (3)
  - Lip swelling [Not Recovered/Not Resolved]
  - Vein rupture [Not Recovered/Not Resolved]
  - Eye pain [Not Recovered/Not Resolved]
